FAERS Safety Report 10430624 (Version 1)
Quarter: 2014Q3

REPORT INFORMATION
  Report Type: Spontaneous
  Country: US (occurrence: None)
  Receive Date: 20140903
  Receipt Date: 20140903
  Transmission Date: 20150326
  Serious: Yes (Hospitalization)
  Sender: FDA-Public Use
  Company Number: None

PATIENT
  Age: 60 Year
  Sex: Male
  Weight: 87.7 kg

DRUGS (3)
  1. SOVALDI [Suspect]
     Active Substance: SOFOSBUVIR
     Indication: HEPATITIS C
     Route: 048
     Dates: start: 20140415, end: 20140708
  2. LEVOTHYROXINE [Concomitant]
     Active Substance: LEVOTHYROXINE
  3. OLYSIO [Suspect]
     Active Substance: SIMEPREVIR
     Indication: HEPATITIS C
     Route: 048
     Dates: start: 20140415, end: 20140708

REACTIONS (6)
  - Hepatitis C [None]
  - Incorrect dose administered [None]
  - Mental status changes [None]
  - Diabetes mellitus [None]
  - Hepatitis C RNA decreased [None]
  - Oxygen saturation [None]

NARRATIVE: CASE EVENT DATE: 20140708
